FAERS Safety Report 19795054 (Version 3)
Quarter: 2022Q2

REPORT INFORMATION
  Report Type: Report from Study
  Country: US (occurrence: None)
  Receive Date: 20210907
  Receipt Date: 20220420
  Transmission Date: 20220721
  Serious: Yes (Hospitalization)
  Sender: FDA-Public Use
  Company Number: US-ROCHE-2903625

PATIENT
  Age: 68 Year
  Sex: Female
  Weight: 67.6 kg

DRUGS (6)
  1. ATEZOLIZUMAB [Suspect]
     Active Substance: ATEZOLIZUMAB
     Indication: Fallopian tube cancer
     Dosage: ON 23/FEB/2021, THE PATIENT RECEIVED MOST RECENT DOSE OF ATEZOLIZUMAB PRIOR TO SERIOUS ADVERSE EVENT
     Route: 041
     Dates: start: 20210111
  2. BEVACIZUMAB [Suspect]
     Active Substance: BEVACIZUMAB
     Indication: Fallopian tube cancer
     Dosage: LAST ADMINISTERED DATE: 23/FEB/2021?CYCLE: 28 DAYS
     Route: 042
     Dates: start: 20210111
  3. DOXORUBICIN [Suspect]
     Active Substance: DOXORUBICIN
     Indication: Fallopian tube cancer
     Dosage: ON 09/FEB/2021, THE PATIENT RECEIVED MOST RECENT DOSE OF LIPOSOMAL DOXORUBICIN PRIOR TO SERIOUS ADVE
     Route: 042
     Dates: start: 20210111
  4. HYDRALAZINE [Concomitant]
     Active Substance: HYDRALAZINE HYDROCHLORIDE
     Indication: Hypertension
     Dosage: DISCONTINUED,
  5. LISINOPRIL [Concomitant]
     Active Substance: LISINOPRIL
     Indication: Hypertension
     Dosage: INCREASED
  6. METOPROLOL [Concomitant]
     Active Substance: METOPROLOL
     Indication: Hypertension

REACTIONS (3)
  - Atrial fibrillation [Not Recovered/Not Resolved]
  - Hypertension [Recovered/Resolved]
  - Headache [Recovered/Resolved]

NARRATIVE: CASE EVENT DATE: 20210307
